FAERS Safety Report 8429432-1 (Version None)
Quarter: 2012Q2

REPORT INFORMATION
  Report Type: 
  Country: None (occurrence: None)
  Receive Date: 20120612
  Receipt Date: 20120529
  Transmission Date: 20120825
  Serious: Yes (Life-Threatening, Other)
  Sender: FDA-Public Use
  Company Number: JP-MYLANLABS-2012S1004099

PATIENT
  Age: 52 Year
  Sex: Female
  Weight: 53 kg

DRUGS (7)
  1. VANCOMYCIN HCL [Suspect]
     Indication: STAPHYLOCOCCAL INFECTION
     Route: 041
     Dates: start: 20120202, end: 20120207
  2. FLURBIPROFEN [Concomitant]
     Indication: PRODUCT USED FOR UNKNOWN INDICATION
     Route: 042
     Dates: start: 20120101
  3. SOLDACTONE [Concomitant]
     Indication: PRODUCT USED FOR UNKNOWN INDICATION
     Route: 042
     Dates: start: 20120101
  4. LASIX [Suspect]
     Route: 042
     Dates: start: 20120129, end: 20120131
  5. MEROPENEM [Concomitant]
     Indication: PRODUCT USED FOR UNKNOWN INDICATION
     Route: 042
     Dates: start: 20120101
  6. LASIX [Suspect]
     Indication: OEDEMA
     Route: 042
     Dates: start: 20120124, end: 20120128
  7. UNASYN [Concomitant]
     Indication: PRODUCT USED FOR UNKNOWN INDICATION
     Route: 042
     Dates: start: 20120101

REACTIONS (2)
  - DEAFNESS [None]
  - DIZZINESS [None]
